FAERS Safety Report 9611078 (Version 2)
Quarter: 2013Q4

REPORT INFORMATION
  Report Type: Spontaneous
  Country: None (occurrence: US)
  Receive Date: 20131009
  Receipt Date: 20131009
  Transmission Date: 20140711
  Serious: No
  Sender: FDA-Public Use
  Company Number: US-SAVIENT-2013S1000021

PATIENT
  Sex: Male
  Weight: 96.25 kg

DRUGS (9)
  1. KRYSTEXXA [Suspect]
     Indication: GOUT
     Dosage: DRUG ROUTE: INTRAVENOUS
     Route: 042
  2. KRYSTEXXA [Suspect]
     Dosage: DRUG ROUTE: INTRAVENOUS
     Route: 042
     Dates: start: 201302
  3. KRYSTEXXA [Suspect]
     Dosage: DRUG ROUTE: INTRAVENOUS
     Route: 042
  4. ALLOPURINOL [Concomitant]
     Indication: GOUT
     Route: 048
     Dates: end: 201302
  5. COLCHICINE [Concomitant]
     Indication: GOUT
     Route: 048
  6. AMOXICILLIN [Concomitant]
     Indication: LYME DISEASE
     Route: 048
  7. PREDNISONE [Concomitant]
     Indication: SWELLING
     Route: 048
  8. PERCOCET-5 [Concomitant]
     Indication: PAIN
     Route: 048
  9. IBUPROFEN [Concomitant]
     Indication: PAIN
     Route: 048

REACTIONS (2)
  - Back pain [Not Recovered/Not Resolved]
  - Weight increased [Not Recovered/Not Resolved]
